FAERS Safety Report 4528933-6 (Version None)
Quarter: 2004Q4

REPORT INFORMATION
  Report Type: 
  Country: None (occurrence: None)
  Receive Date: 20041214
  Receipt Date: 20041202
  Transmission Date: 20050328
  Serious: Yes (Hospitalization)
  Sender: FDA-Public Use
  Company Number: 200413312GDS

PATIENT
  Age: 73 Year
  Sex: Female

DRUGS (1)
  1. KETOPROFEN [Suspect]
     Indication: ARTHRALGIA

REACTIONS (1)
  - GASTROENTERITIS [None]
